FAERS Safety Report 18192920 (Version 1)
Quarter: 2020Q3

REPORT INFORMATION
  Report Type: Spontaneous
  Country: US (occurrence: US)
  Receive Date: 20200825
  Receipt Date: 20200825
  Transmission Date: 20201103
  Serious: Yes (Life-Threatening)
  Sender: FDA-Public Use
  Company Number: None

PATIENT
  Age: 75 Year
  Sex: Female
  Weight: 102.4 kg

DRUGS (1)
  1. REMDESIVIR. [Suspect]
     Active Substance: REMDESIVIR
     Indication: SARS-COV-2 TEST POSITIVE
     Dosage: FREQUENCY: LOADING DOSE
     Route: 042
     Dates: start: 20200824, end: 20200825

REACTIONS (2)
  - Electrocardiogram QT prolonged [None]
  - Torsade de pointes [None]

NARRATIVE: CASE EVENT DATE: 20200825
